FAERS Safety Report 24086356 (Version 1)
Quarter: 2024Q3

REPORT INFORMATION
  Report Type: Spontaneous
  Country: IT (occurrence: IT)
  Receive Date: 20240712
  Receipt Date: 20240712
  Transmission Date: 20241016
  Serious: Yes (Other)
  Sender: CARA THERAPEUTICS
  Company Number: IT-Vifor Pharma-VIT-2024-06052

PATIENT

DRUGS (1)
  1. KORSUVA [Suspect]
     Active Substance: DIFELIKEFALIN ACETATE
     Indication: Product used for unknown indication
     Dosage: 21.4286 MICROGRAM PER MILLILITRE (50 MICROGRAM PER MILLILITRE,3 IN 1 WK)

REACTIONS (1)
  - Chronic kidney disease [Unknown]
